FAERS Safety Report 7621289-1 (Version None)
Quarter: 2011Q3

REPORT INFORMATION
  Report Type: 
  Country: None (occurrence: None)
  Receive Date: 20110719
  Receipt Date: 20110714
  Transmission Date: 20111222
  Serious: Yes (Death)
  Sender: FDA-Public Use
  Company Number: US-CELGENEUS-163-20785-11062616

PATIENT
  Sex: Male

DRUGS (11)
  1. THALOMID [Suspect]
     Indication: MULTIPLE MYELOMA
     Dosage: 100 MILLIGRAM
     Route: 048
     Dates: start: 20110501, end: 20110101
  2. CHOLECALCIFEROL [Concomitant]
     Dosage: 500 UNIT
     Route: 048
     Dates: end: 20110523
  3. WARFARIN SODIUM [Concomitant]
     Dosage: 7.5 MILLIGRAM
     Route: 048
     Dates: end: 20110522
  4. OMEGA-3 FATTY ACIDS [Concomitant]
     Dosage: 1000 MILLIGRAM
     Route: 048
     Dates: end: 20110523
  5. SIMVASTATIN [Concomitant]
     Dosage: 40 MILLIGRAM
     Route: 048
     Dates: end: 20110523
  6. ASPIRIN [Concomitant]
     Dosage: 81 MILLIGRAM
     Route: 048
     Dates: end: 20110523
  7. ACETAMINOPHEN [Concomitant]
     Dosage: 500 MILLIGRAM
     Route: 048
     Dates: end: 20110523
  8. B-COMPLEX-C-BIOTIN-FE + FA [Concomitant]
     Dosage: 1 TABLET
     Route: 048
     Dates: end: 20110523
  9. EPOETIN ALFA [Concomitant]
     Dosage: 40000 UNIT/ML
     Route: 058
  10. OMEPRAZOLE [Concomitant]
     Dosage: 40 MILLIGRAM
     Route: 048
     Dates: end: 20110523
  11. CALCIUM CARBONATE [Concomitant]
     Dosage: 500 MILLIGRAM
     Route: 048
     Dates: end: 20110523

REACTIONS (1)
  - MULTIPLE MYELOMA [None]
